FAERS Safety Report 15358678 (Version 3)
Quarter: 2020Q1

REPORT INFORMATION
  Report Type: Report from Study
  Country: US (occurrence: US)
  Receive Date: 20180906
  Receipt Date: 20200302
  Transmission Date: 20200409
  Serious: No
  Sender: FDA-Public Use
  Company Number: PHEH2018US035707

PATIENT
  Sex: Male

DRUGS (1)
  1. AFINITOR [Suspect]
     Active Substance: EVEROLIMUS
     Indication: TUBEROUS SCLEROSIS COMPLEX
     Dosage: 10 MG, QD
     Route: 048
     Dates: start: 20180817, end: 20200227

REACTIONS (3)
  - Diarrhoea [Recovering/Resolving]
  - Pollakiuria [Not Recovered/Not Resolved]
  - Oral pain [Not Recovered/Not Resolved]
